FAERS Safety Report 7691732-0 (Version None)
Quarter: 2011Q3

REPORT INFORMATION
  Report Type: 
  Country: None (occurrence: None)
  Receive Date: 20110818
  Receipt Date: 20110811
  Transmission Date: 20111222
  Serious: Yes (Other)
  Sender: FDA-Public Use
  Company Number: US-GLAXOSMITHKLINE-A0941264A

PATIENT
  Sex: Female
  Weight: 64 kg

DRUGS (14)
  1. TYLENOL W/ CODEINE NO. 3 [Concomitant]
  2. HYDROCHLOROTHIAZIDE [Concomitant]
  3. ATENOLOL [Concomitant]
  4. ACYCLOVIR [Concomitant]
  5. ZOMETA [Concomitant]
  6. GAMMAGARD [Concomitant]
  7. GEMZAR [Suspect]
     Indication: PRODUCT USED FOR UNKNOWN INDICATION
  8. DESONIDE [Concomitant]
  9. HERCEPTIN [Concomitant]
  10. TYKERB [Suspect]
     Indication: PRODUCT USED FOR UNKNOWN INDICATION
     Dosage: 1250MG PER DAY
     Route: 048
  11. LYRICA [Concomitant]
  12. SILICA [Concomitant]
  13. MULTI-VITAMIN [Concomitant]
  14. CHLORHEXIDINE GLUCONATE [Concomitant]

REACTIONS (6)
  - RED BLOOD CELL COUNT DECREASED [None]
  - FATIGUE [None]
  - WHITE BLOOD CELL COUNT DECREASED [None]
  - ANAEMIA [None]
  - NAIL DISORDER [None]
  - PLATELET COUNT DECREASED [None]
